FAERS Safety Report 5452889-5 (Version None)
Quarter: 2007Q3

REPORT INFORMATION
  Report Type: 
  Country: None (occurrence: None)
  Receive Date: 20070914
  Receipt Date: 20070906
  Transmission Date: 20080115
  Serious: Yes (Other)
  Sender: FDA-Public Use
  Company Number: A0681639A

PATIENT
  Age: 6 Year
  Sex: Male

DRUGS (1)
  1. FLOVENT [Suspect]
     Indication: DRUG USE FOR UNKNOWN INDICATION
     Route: 055

REACTIONS (6)
  - ADVERSE DRUG REACTION [None]
  - AGGRESSION [None]
  - DRUG HYPERSENSITIVITY [None]
  - EMOTIONAL DISORDER [None]
  - INSOMNIA [None]
  - MOOD SWINGS [None]
